FAERS Safety Report 10240508 (Version 6)
Quarter: 2014Q3

REPORT INFORMATION
  Report Type: Report from Study
  Country: JP (occurrence: JP)
  Receive Date: 20140617
  Receipt Date: 20140820
  Transmission Date: 20150326
  Serious: Yes (Other)
  Sender: FDA-Public Use
  Company Number: JP-BEH-2014043084

PATIENT
  Sex: Female
  Weight: 52.4 kg

DRUGS (69)
  1. PHYSIO 140 [Concomitant]
     Dosage: MEDICATION FROM ANAESTHESIA RECORD
     Dates: start: 20140602
  2. FENTANYL. [Concomitant]
     Active Substance: FENTANYL
     Dosage: MEDICATION FROM ANAESTHESIA RECORD
     Dates: start: 20140602
  3. EPHEDRINE [Concomitant]
     Active Substance: EPHEDRINE
     Dosage: MEDICATION FROM ANAESTHESIA RECORD
     Dates: start: 20140602
  4. EPHEDRINE [Concomitant]
     Active Substance: EPHEDRINE
     Dosage: MEDICATION FROM ANAESTHESIA RECORD
     Dates: start: 20140602
  5. SOLYUGEN F [Concomitant]
     Dosage: MEDICATION FROM ANESTHESIA RECORD
     Dates: start: 20120602
  6. PHYSIO 140 [Concomitant]
     Dosage: MEDICATION FROM ANAESTHESIA RECORD
     Dates: start: 20140602
  7. PHYSIO 140 [Concomitant]
     Dosage: MEDICATION FROM ANAESTHESIA RECORD
     Dates: start: 20140602
  8. FENTANYL. [Concomitant]
     Active Substance: FENTANYL
     Dosage: MEDICATION FROM ANAESTHESIA RECORD
     Dates: start: 20140602
  9. REMIFENTANYL [Concomitant]
     Active Substance: REMIFENTANIL
     Dosage: 8 ML/H (5MG/50ML), MEDICATION FROM ANAESTHESIA RECORD
     Dates: start: 20140602
  10. REMIFENTANYL [Concomitant]
     Active Substance: REMIFENTANIL
     Dosage: 6 ML/H (5MG/50ML), MEDICATION FROM ANAESTHESIA RECORD
     Dates: start: 20140602
  11. EPHEDRINE [Concomitant]
     Active Substance: EPHEDRINE
     Dosage: MEDICATION FROM ANAESTHESIA RECORD
     Dates: start: 20140602
  12. CEFAZOLIN [Concomitant]
     Active Substance: CEFAZOLIN
     Dosage: MEDICATION FROM ANESTHESIA RECORD
     Dates: start: 20140602
  13. CEFAZOLIN [Concomitant]
     Active Substance: CEFAZOLIN
     Dosage: UNKNOWN DOSE, MEDICATION FROM ANESTHESIA RECORD
     Dates: start: 20140602
  14. RIASTAP [Suspect]
     Active Substance: FIBRINOGEN HUMAN
     Indication: AORTIC ANEURYSM
     Dosage: 168 ML
     Dates: start: 20140602, end: 20140602
  15. HUMAN RED BLOOD CELL CONCENTRATES [Concomitant]
     Route: 050
     Dates: start: 20140602, end: 20140602
  16. SENNOSIDE [Concomitant]
     Active Substance: SENNOSIDES
     Indication: DRUG THERAPY
     Dosage: FREQUENCY: ONCE
     Route: 048
     Dates: start: 20140601, end: 20140601
  17. FENTANYL. [Concomitant]
     Active Substance: FENTANYL
     Dosage: MEDICATION FROM ANAESTHESIA RECORD
     Dates: start: 20140602
  18. SOLYUGEN F [Concomitant]
     Dosage: MEDICATION FROM ANESTHESIA RECORD
     Dates: start: 20120602
  19. CEFAZOLIN [Concomitant]
     Active Substance: CEFAZOLIN
     Dosage: UNKNOWN DOSE, MEDICATION FROM ANESTHESIA RECORD
     Dates: start: 20140602
  20. CEFAZOLIN [Concomitant]
     Active Substance: CEFAZOLIN
     Dosage: UNKNOWN DOSE, MEDICATION FROM ANESTHESIA RECORD
     Dates: start: 20140602
  21. HEPARIN [Concomitant]
     Active Substance: HEPARIN SODIUM
     Dosage: 11ML (10,000IU/10ML), MEDICATION FROM ANESTHESIA RECORD
     Dates: start: 20140602
  22. HEPARIN [Concomitant]
     Active Substance: HEPARIN SODIUM
     Dosage: 4ML (10,000IU/10ML), MEDICATION FROM ANESTHESIA RECORD
     Dates: start: 20140602
  23. MIOTECTER [Concomitant]
     Dosage: MEDICATION FROM ANESTHESIA RECORD
     Dates: start: 20140602
  24. CONTRACEPTIVES NOS [Concomitant]
     Active Substance: UNSPECIFIED INGREDIENT
     Dosage: MEDICATION FROM ANESTHESIA RECORD
     Dates: start: 20140602
  25. MEYLON (7% 1.4G/20ML) [Concomitant]
     Dosage: MEDICATION FROM ANESTHESIA RECORD
     Dates: start: 20140602
  26. ALL OTHER THERAPEUTIC PRODUCTS [Concomitant]
     Active Substance: UNSPECIFIED INGREDIENT
     Dosage: MEDICATION FROM ANESTHESIA RECORD
     Dates: start: 20140602
  27. BROTIZOLAM [Concomitant]
     Active Substance: BROTIZOLAM
     Indication: DRUG THERAPY
     Dosage: FREQUENCY: ONCE
     Route: 048
     Dates: start: 20140601, end: 20140601
  28. POVIDONE-IODINE GEL (10%) [Concomitant]
     Indication: DRUG THERAPY
     Dosage: ONGOING: YES
     Route: 061
     Dates: start: 20140602
  29. REMIFENTANYL [Concomitant]
     Active Substance: REMIFENTANIL
     Dosage: 3 ML/H (5MG/50ML), MEDICATION FROM ANAESTHESIA RECORD
     Dates: start: 20140602
  30. ROCURONIUM [Concomitant]
     Active Substance: ROCURONIUM BROMIDE
     Dosage: UNKNOWN DOSE, MEDICATION FROM ANAESTHESIA RECORD
     Dates: start: 20140602
  31. PROPOFOL. [Concomitant]
     Active Substance: PROPOFOL
     Dosage: 2MG/KG/H, MEDICATION FROM ANAESTHESIA RECORD
     Dates: start: 20140602
  32. EPHEDRINE [Concomitant]
     Active Substance: EPHEDRINE
     Dosage: MEDICATION FROM ANAESTHESIA RECORD
     Dates: start: 20140602
  33. CEFAZOLIN [Concomitant]
     Active Substance: CEFAZOLIN
     Dosage: MEDICATION FROM ANESTHESIA RECORD
     Dates: start: 20140602
  34. MEYLON (7% 1.4G/20ML) [Concomitant]
     Dosage: MEDICATION FROM ANESTHESIA RECORD
     Dates: start: 20140602
  35. RIASTAP [Suspect]
     Active Substance: FIBRINOGEN HUMAN
     Indication: AORTIC VALVE REPAIR
     Dosage: 168 ML
     Dates: start: 20140602, end: 20140602
  36. HUMAN ALBUMIN 5 % [Concomitant]
     Indication: PROPHYLAXIS
     Route: 050
     Dates: start: 20140602, end: 20140602
  37. HUMAN RED BLOOD CELL CONCENTRATES [Concomitant]
     Indication: PROPHYLAXIS
     Route: 050
     Dates: start: 20140602, end: 20140602
  38. PHYSIO 140 [Concomitant]
     Dosage: MEDICATION FROM ANAESTHESIA RECORD
     Dates: start: 20140602
  39. FENTANYL. [Concomitant]
     Active Substance: FENTANYL
     Dosage: MEDICATION FROM ANAESTHESIA RECORD
     Dates: start: 20140602
  40. FENTANYL. [Concomitant]
     Active Substance: FENTANYL
     Dosage: MEDICATION FROM ANAESTHESIA RECORD
     Dates: start: 20140602
  41. REMIFENTANYL [Concomitant]
     Active Substance: REMIFENTANIL
     Dosage: 6 ML/H (5MG/50ML), MEDICATION FROM ANAESTHESIA RECORD
     Dates: start: 20140602
  42. MANNITOL 20% [Concomitant]
     Dosage: MEDICATION FROM ANESTHESIA RECORD
     Dates: start: 20140602
  43. MANNITOL 20% [Concomitant]
     Dosage: MEDICATION FROM ANESTHESIA RECORD
     Dates: start: 20140602
  44. CONTRACEPTIVES NOS [Concomitant]
     Active Substance: UNSPECIFIED INGREDIENT
     Dosage: MEDICATION FROM ANESTHESIA RECORD
     Dates: start: 20140602
  45. MEYLON (7% 1.4G/20ML) [Concomitant]
     Dosage: MEDICATION FROM ANESTHESIA RECORD
     Dates: start: 20140602
  46. SIVELESTAT SODIUM HYDRATE [Concomitant]
     Dosage: MEDICATION FROM ANESTHESIA RECORD
     Dates: start: 20140602
  47. HUMAN ALBUMIN 5 % [Concomitant]
     Route: 050
     Dates: start: 20140602, end: 20140602
  48. METHYLPREDNISOLONE SODIUM SUCCINATE (500) [Concomitant]
     Indication: PROPHYLAXIS
     Dosage: ECRF: 1000MG, MEDICATION FROM ANESTHESIA RECORD: 16 ML (500MG/8ML)
     Route: 050
     Dates: start: 20140602, end: 20140602
  49. HUMAN RED BLOOD CELL CONCENTRATES [Concomitant]
     Route: 050
     Dates: start: 20140602, end: 20140602
  50. REMIFENTANYL [Concomitant]
     Active Substance: REMIFENTANIL
     Dosage: 5 ML/H (5MG/50ML), MEDICATION FROM ANAESTHESIA RECORD
     Dates: start: 20140602
  51. ROCURONIUM [Concomitant]
     Active Substance: ROCURONIUM BROMIDE
     Dosage: MEDICATION FROM ANAESTHESIA RECORD
     Dates: start: 20140602
  52. EPHEDRINE [Concomitant]
     Active Substance: EPHEDRINE
     Dosage: MEDICATION FROM ANAESTHESIA RECORD
     Dates: start: 20140602
  53. HEPARIN [Concomitant]
     Active Substance: HEPARIN SODIUM
     Dosage: UNKNOWN DOSE, MEDICATION FROM ANESTHESIA RECORD
     Dates: start: 20140602
  54. CONTRACEPTIVES NOS [Concomitant]
     Active Substance: UNSPECIFIED INGREDIENT
     Dosage: MEDICATION FROM ANESTHESIA RECORD
     Dates: start: 20140602
  55. HUMAN RED BLOOD CELL CONCENTRATES [Concomitant]
     Route: 050
     Dates: start: 20140602, end: 20140602
  56. LANSOPRAZOLE. [Concomitant]
     Active Substance: LANSOPRAZOLE
     Indication: GASTRIC CANCER
     Route: 048
     Dates: start: 2013, end: 20140601
  57. VALSARTAN. [Concomitant]
     Active Substance: VALSARTAN
     Indication: HYPERTENSION
     Route: 048
     Dates: start: 2013, end: 20140601
  58. FENTANYL. [Concomitant]
     Active Substance: FENTANYL
     Dosage: MEDICATION FROM ANAESTHESIA RECORD
     Dates: start: 20140602
  59. ROCURONIUM [Concomitant]
     Active Substance: ROCURONIUM BROMIDE
     Dosage: MEDICATION FROM ANAESTHESIA RECORD
     Dates: start: 20140602
  60. PROPOFOL. [Concomitant]
     Active Substance: PROPOFOL
     Dosage: 1MG/KG/H, MEDICATION FROM ANAESTHESIA RECORD
     Dates: start: 20140602
  61. SOLYUGEN F [Concomitant]
     Dosage: MEDICATION FROM ANESTHESIA RECORD
     Dates: start: 20120602
  62. CEFAZOLIN [Concomitant]
     Active Substance: CEFAZOLIN
     Dosage: MEDICATION FROM ANESTHESIA RECORD
     Dates: start: 20140602
  63. MANNITOL 20% [Concomitant]
     Dosage: MEDICATION FROM ANESTHESIA RECORD
     Dates: start: 20140602
  64. RIASTAP [Suspect]
     Active Substance: FIBRINOGEN HUMAN
     Indication: AORTIC SURGERY
     Dosage: 168 ML
     Dates: start: 20140602, end: 20140602
  65. TRANEXAMIC ACID 10 % [Concomitant]
     Indication: PROPHYLAXIS
     Dosage: ECRF: 10ML, MEDICATION FROM ANESTHESIA RECORD: 5ML
     Route: 050
     Dates: start: 20140602, end: 20140602
  66. PROTAMINE SULFATE (1%) [Concomitant]
     Indication: PROPHYLAXIS
     Route: 050
     Dates: start: 20140602, end: 20140602
  67. PROPOFOL. [Concomitant]
     Active Substance: PROPOFOL
     Dosage: 10ML (200MG/20ML), MEDICATION FROM ANAESTHESIA RECORD
     Dates: start: 20140602
  68. PROPOFOL. [Concomitant]
     Active Substance: PROPOFOL
     Dosage: 2.5MG/KG/H, MEDICATION FROM ANAESTHESIA RECORD
     Dates: start: 20140602
  69. ALL OTHER THERAPEUTIC PRODUCTS [Concomitant]
     Active Substance: UNSPECIFIED INGREDIENT
     Dosage: MEDICATION FROM ANESTHESIA RECORD
     Dates: start: 20140602

REACTIONS (1)
  - Aspartate aminotransferase increased [Recovered/Resolved]

NARRATIVE: CASE EVENT DATE: 20140602
